FAERS Safety Report 14071638 (Version 2)
Quarter: 2017Q4

REPORT INFORMATION
  Report Type: Spontaneous
  Country: IT (occurrence: IT)
  Receive Date: 20171011
  Receipt Date: 20171013
  Transmission Date: 20180321
  Serious: Yes (Hospitalization)
  Sender: FDA-Public Use
  Company Number: IT-SUN PHARMACEUTICAL INDUSTRIES LTD-2017RR-152075

PATIENT
  Age: 48 Year
  Sex: Male

DRUGS (10)
  1. FENTANYL TRANSDERMAL SYSTEM [Interacting]
     Active Substance: FENTANYL
     Indication: PAIN
     Dosage: 1 DF AS NECESSARY
     Route: 048
  2. EUTIROX 175 MICROGRAMMS [Concomitant]
     Indication: PRODUCT USED FOR UNKNOWN INDICATION
     Route: 065
  3. GABAPENTIN. [Suspect]
     Active Substance: GABAPENTIN
     Indication: EPILEPSY
     Dosage: 1 DF DAILY
     Route: 048
  4. LAROXYL 25MG [Interacting]
     Active Substance: AMITRIPTYLINE
     Indication: DEPRESSION
     Dosage: 1 DF DAILY
     Route: 048
  5. PERGASTID 15 MG [Concomitant]
     Indication: PRODUCT USED FOR UNKNOWN INDICATION
     Route: 065
  6. VENLAFAXINE [Interacting]
     Active Substance: VENLAFAXINE HYDROCHLORIDE
     Indication: DEPRESSION
     Dosage: 1 DF DAILY
     Route: 048
  7. ORAMORPH 10 MG/5 ML [Interacting]
     Active Substance: MORPHINE SULFATE
     Indication: PAIN
     Dosage: 1 DF AS NECESSARY
     Route: 048
  8. TAVOR 1 MG [Interacting]
     Active Substance: LORAZEPAM
     Indication: ANXIETY
     Dosage: 1 DF DAILY
     Route: 048
  9. METHADONE [Interacting]
     Active Substance: METHADONE HYDROCHLORIDE
     Indication: PAIN
     Dosage: 40 MG DAILY
     Route: 048
  10. FENTANYL TRANSDERMAL SYSTEM [Interacting]
     Active Substance: FENTANYL
     Indication: PAIN
     Dosage: 1 DF AS NECESSARY
     Route: 003

REACTIONS (6)
  - Fracture [Unknown]
  - Fall [Unknown]
  - Injury [Unknown]
  - Drug interaction [Unknown]
  - Wound [Unknown]
  - Somnolence [Unknown]

NARRATIVE: CASE EVENT DATE: 20170602
